FAERS Safety Report 17198087 (Version 4)
Quarter: 2021Q1

REPORT INFORMATION
  Report Type: Spontaneous
  Country: CA (occurrence: CA)
  Receive Date: 20191225
  Receipt Date: 20210305
  Transmission Date: 20210419
  Serious: Yes (Other)
  Sender: FDA-Public Use
  Company Number: CA-ROCHE-2500389

PATIENT
  Age: 54 Year
  Sex: Male

DRUGS (13)
  1. LAMIVUDINE. [Suspect]
     Active Substance: LAMIVUDINE
     Indication: HIV INFECTION
     Route: 048
  2. RIVOTRIL [Suspect]
     Active Substance: CLONAZEPAM
     Indication: BIPOLAR DISORDER
     Route: 048
  3. BUPROPION. [Suspect]
     Active Substance: BUPROPION
     Indication: BIPOLAR DISORDER
     Route: 065
  4. ZOPICLONE [Suspect]
     Active Substance: ZOPICLONE
     Indication: PRODUCT USED FOR UNKNOWN INDICATION
     Route: 065
  5. SERTRALINE [Suspect]
     Active Substance: SERTRALINE HYDROCHLORIDE
     Indication: BIPOLAR DISORDER
     Route: 048
  6. ENFUVIRTIDE. [Concomitant]
     Active Substance: ENFUVIRTIDE
  7. QUETIAPINE. [Suspect]
     Active Substance: QUETIAPINE
     Indication: BIPOLAR DISORDER
     Route: 048
  8. EFAVIRENZ. [Suspect]
     Active Substance: EFAVIRENZ
     Indication: HIV INFECTION
     Route: 048
  9. RALTEGRAVIR. [Suspect]
     Active Substance: RALTEGRAVIR
     Indication: HIV INFECTION
     Route: 048
  10. VALPROIC ACID. [Suspect]
     Active Substance: VALPROIC ACID
     Indication: PRODUCT USED FOR UNKNOWN INDICATION
     Route: 065
  11. ATAZANAVIR SULFATE. [Suspect]
     Active Substance: ATAZANAVIR SULFATE
     Indication: HIV INFECTION
     Route: 048
  12. EFAVIRENZ. [Suspect]
     Active Substance: EFAVIRENZ
     Route: 065
  13. LOPINAVIR/RITONAVIR [Suspect]
     Active Substance: LOPINAVIR\RITONAVIR
     Indication: HIV INFECTION
     Route: 048

REACTIONS (3)
  - Depression [Unknown]
  - Loss of personal independence in daily activities [Unknown]
  - Drug interaction [Unknown]
